FAERS Safety Report 13540157 (Version 4)
Quarter: 2017Q2

REPORT INFORMATION
  Report Type: Report from Study
  Country: BR (occurrence: BR)
  Receive Date: 20170512
  Receipt Date: 20170608
  Transmission Date: 20170830
  Serious: Yes (Other)
  Sender: FDA-Public Use
  Company Number: ALCN2017BR003240

PATIENT
  Sex: Female
  Weight: 58 kg

DRUGS (3)
  1. EPITEGEL [Concomitant]
     Indication: DRY EYE
     Route: 047
  2. DUOTRAV BAC-FREE [Suspect]
     Active Substance: TIMOLOL\TRAVOPROST
     Indication: GLAUCOMA
     Dosage: 1 GTT, QHS
     Route: 047
     Dates: start: 2012
  3. HYABAK [Concomitant]
     Active Substance: HYALURONATE SODIUM
     Indication: DRY EYE
     Dosage: UNK
     Route: 065

REACTIONS (9)
  - Ocular hyperaemia [Unknown]
  - Eye pruritus [Recovering/Resolving]
  - Retinal vascular disorder [Unknown]
  - Eye irritation [Unknown]
  - Blepharal pigmentation [Recovering/Resolving]
  - Drug ineffective [Unknown]
  - Dry eye [Unknown]
  - Visual impairment [Recovering/Resolving]
  - Eye pain [Recovering/Resolving]
